FAERS Safety Report 9816999 (Version 2)
Quarter: 2014Q1

REPORT INFORMATION
  Report Type: Spontaneous
  Country: US (occurrence: US)
  Receive Date: 20140114
  Receipt Date: 20140218
  Transmission Date: 20141002
  Serious: No
  Sender: FDA-Public Use
  Company Number: US-BIOGENIDEC-2013BI120031

PATIENT
  Age: 39 Year
  Sex: Female

DRUGS (7)
  1. TECFIDERA [Suspect]
     Indication: MULTIPLE SCLEROSIS
     Route: 048
     Dates: start: 201310
  2. TECFIDERA [Suspect]
     Indication: MULTIPLE SCLEROSIS
     Route: 048
     Dates: start: 201310
  3. LAMICTAL [Concomitant]
  4. TIZANIDINE HCL [Concomitant]
  5. OMEGA 3-6-9 [Concomitant]
  6. ATIVAN [Concomitant]
  7. GINGER ROOT [Concomitant]

REACTIONS (4)
  - Breast tenderness [Unknown]
  - Arthralgia [Unknown]
  - Flushing [Unknown]
  - Dyspepsia [Unknown]
